FAERS Safety Report 10882098 (Version 1)
Quarter: 2015Q1

REPORT INFORMATION
  Report Type: Spontaneous
  Country: US (occurrence: None)
  Receive Date: 20150225
  Receipt Date: 20150225
  Transmission Date: 20150721
  Serious: Yes (Life-Threatening, Disabling)
  Sender: FDA-Public Use
  Company Number: None

PATIENT
  Age: 43 Year
  Sex: Female
  Weight: 117.94 kg

DRUGS (16)
  1. ALBUTEROL. [Concomitant]
     Active Substance: ALBUTEROL
  2. CABOGIA GARCINIA [Concomitant]
  3. ZYPREXA [Suspect]
     Active Substance: OLANZAPINE
     Indication: INJURY
     Route: 048
     Dates: start: 20121010, end: 20141209
  4. CLINDAMYCIN [Concomitant]
     Active Substance: CLINDAMYCIN\CLINDAMYCIN PHOSPHATE
  5. POTASSIUM [Concomitant]
     Active Substance: POTASSIUM
  6. METFORMIN [Concomitant]
     Active Substance: METFORMIN HYDROCHLORIDE
  7. FUROSEMIDE. [Concomitant]
     Active Substance: FUROSEMIDE
  8. LATUDA [Suspect]
     Active Substance: LURASIDONE HYDROCHLORIDE
     Indication: MANIA
     Dosage: 1 PILL
     Route: 048
     Dates: start: 20130106, end: 20130918
  9. LOSARTAN [Concomitant]
     Active Substance: LOSARTAN
  10. SIMVASTATIN. [Concomitant]
     Active Substance: SIMVASTATIN
  11. INVOKANA [Concomitant]
     Active Substance: CANAGLIFLOZIN
  12. DIOVAN [Concomitant]
     Active Substance: VALSARTAN
  13. CYCLOBENAZPRINE [Concomitant]
     Active Substance: CYCLOBENZAPRINE
  14. FANAPT [Concomitant]
     Active Substance: ILOPERIDONE
  15. COMBIVENT [Concomitant]
     Active Substance: ALBUTEROL SULFATE\IPRATROPIUM BROMIDE
  16. NIACIN. [Concomitant]
     Active Substance: NIACIN

REACTIONS (3)
  - Weight increased [None]
  - Diabetes mellitus [None]
  - Drug ineffective [None]

NARRATIVE: CASE EVENT DATE: 20141002
